FAERS Safety Report 8503654-3 (Version None)
Quarter: 2012Q3

REPORT INFORMATION
  Report Type: 
  Country: None (occurrence: None)
  Receive Date: 20120711
  Receipt Date: 20120705
  Transmission Date: 20120928
  Serious: Yes (Hospitalization)
  Sender: FDA-Public Use
  Company Number: US-ABBOTT-12P-163-0953482-00

PATIENT
  Age: 32 Year
  Sex: Female

DRUGS (5)
  1. OMEPRAZOLE [Concomitant]
     Indication: GASTROOESOPHAGEAL REFLUX DISEASE
     Dosage: 20 MG DAILY
  2. HUMIRA [Suspect]
     Indication: CROHN'S DISEASE
     Dosage: LOADING DOSE
     Dates: start: 20120629
  3. MS CONTIN [Concomitant]
     Indication: PAIN
  4. LIALDA [Concomitant]
     Indication: CROHN'S DISEASE
     Dosage: 1.2 GM X 4 TABS DAILY
  5. HYDROCODONE [Concomitant]
     Indication: PAIN
     Dosage: 5/500 MG, AS REQUIRED

REACTIONS (4)
  - INFECTION [None]
  - ABDOMINAL DISTENSION [None]
  - ABDOMINAL PAIN [None]
  - CONSTIPATION [None]
